FAERS Safety Report 7267388-8 (Version None)
Quarter: 2011Q1

REPORT INFORMATION
  Report Type: 
  Country: None (occurrence: None)
  Receive Date: 20110201
  Receipt Date: 20100830
  Transmission Date: 20110831
  Serious: No
  Sender: FDA-Public Use
  Company Number: A0878402A

PATIENT
  Age: 48 Year
  Sex: Female

DRUGS (6)
  1. DIFLUCAN [Concomitant]
  2. ZOSYN [Concomitant]
  3. TAMOXIFEN CITRATE [Concomitant]
  4. ARIXTRA [Suspect]
     Indication: PULMONARY EMBOLISM
     Dosage: 7.5MG PER DAY
     Route: 058
     Dates: start: 20100813
  5. AUGMENTIN '125' [Concomitant]
  6. LEVAQUIN [Concomitant]

REACTIONS (2)
  - BLOOD URINE PRESENT [None]
  - CONTUSION [None]
